FAERS Safety Report 4385877-0 (Version None)
Quarter: 2004Q2

REPORT INFORMATION
  Report Type: 
  Country: None (occurrence: None)
  Receive Date: 20040628
  Receipt Date: 20040625
  Transmission Date: 20050107
  Serious: Yes (Other)
  Sender: FDA-Public Use
  Company Number: US-GLAXOSMITHKLINE-A0516123A

PATIENT
  Age: 66 Year
  Sex: Female

DRUGS (4)
  1. VALTREX [Suspect]
     Dosage: 500MG TWICE PER DAY
     Route: 048
     Dates: start: 20040618, end: 20040618
  2. CATAPRES [Concomitant]
  3. UNKNOWN BLOOD PRESSURE MEDICATION [Concomitant]
  4. DIURETIC [Concomitant]

REACTIONS (7)
  - ABDOMINAL PAIN [None]
  - BLOOD CREATININE INCREASED [None]
  - BLOOD UREA INCREASED [None]
  - FLANK PAIN [None]
  - MEDICATION ERROR [None]
  - NAUSEA [None]
  - PANCREATITIS [None]
